FAERS Safety Report 16556588 (Version 1)
Quarter: 2019Q3

REPORT INFORMATION
  Report Type: Other
  Country: KR (occurrence: KR)
  Receive Date: 20190711
  Receipt Date: 20190711
  Transmission Date: 20191004
  Serious: No
  Sender: FDA-Public Use
  Company Number: KR-AGG-10-2018-0998

PATIENT

DRUGS (13)
  1. ASPIRIN. [Concomitant]
     Active Substance: ASPIRIN
     Dosage: LOADING DOSE
  2. CARVEDILOL. [Concomitant]
     Active Substance: CARVEDILOL
  3. LOSARTAN. [Concomitant]
     Active Substance: LOSARTAN
  4. AGGRASTAT [Suspect]
     Active Substance: TIROFIBAN HYDROCHLORIDE
     Indication: ANTIPLATELET THERAPY
     Dosage: 0.4 MCG/KG/MIN FOR 30 MIN
     Route: 042
  5. HEPARIN [Concomitant]
     Active Substance: HEPARIN SODIUM
     Dosage: 75 U/KG
     Route: 040
  6. ASPIRIN. [Concomitant]
     Active Substance: ASPIRIN
     Dosage: MAINTENANCE DOSE
  7. ATROVASTATIN [Concomitant]
     Active Substance: ATORVASTATIN CALCIUM
  8. CLOPIDOGREL [Concomitant]
     Active Substance: CLOPIDOGREL BISULFATE
     Dosage: MAINTENANCE DOSE
  9. AGGRASTAT [Suspect]
     Active Substance: TIROFIBAN HYDROCHLORIDE
     Indication: ANTIPLATELET THERAPY
     Dosage: 0.10 MCG/KG/MIN FOR 12H
     Route: 041
  10. CLOPIDOGREL [Concomitant]
     Active Substance: CLOPIDOGREL BISULFATE
     Dosage: LOADING DOSE
  11. HYDROCHLOROTHIAZIDE. [Concomitant]
     Active Substance: HYDROCHLOROTHIAZIDE
  12. AMLODIPINE BESYLATE. [Concomitant]
     Active Substance: AMLODIPINE BESYLATE
  13. GLIMEPIRIDE. [Concomitant]
     Active Substance: GLIMEPIRIDE

REACTIONS (2)
  - Hyperthyroidism [Unknown]
  - Headache [Unknown]
